FAERS Safety Report 7986555-9 (Version None)
Quarter: 2011Q4

REPORT INFORMATION
  Report Type: 
  Country: None (occurrence: None)
  Receive Date: 20111216
  Receipt Date: 20111206
  Transmission Date: 20120403
  Serious: Yes (Hospitalization)
  Sender: FDA-Public Use
  Company Number: US-JNJFOC-20111012690

PATIENT
  Sex: Female
  Weight: 83.01 kg

DRUGS (14)
  1. NORVASC [Concomitant]
  2. FOLIC ACID [Concomitant]
  3. MONOPRIL [Concomitant]
  4. METHOTREXATE [Concomitant]
  5. ADVAIR DISKUS 100/50 [Concomitant]
  6. REMICADE [Suspect]
     Indication: RHEUMATOID ARTHRITIS
     Route: 042
     Dates: start: 20111003
  7. TOPROL-XL [Concomitant]
  8. CRESTOR [Concomitant]
  9. REMICADE [Suspect]
     Route: 042
     Dates: start: 20080101, end: 20080101
  10. SYNTHROID [Concomitant]
  11. FOSAMAX [Concomitant]
  12. LASIX [Concomitant]
  13. LEXAPRO [Concomitant]
  14. REMICADE [Suspect]
     Route: 042
     Dates: start: 20111017, end: 20111017

REACTIONS (4)
  - ANAPHYLACTIC REACTION [None]
  - ADVERSE EVENT [None]
  - INFUSION RELATED REACTION [None]
  - PRURITUS [None]
